FAERS Safety Report 8229464-2 (Version None)
Quarter: 2012Q1

REPORT INFORMATION
  Report Type: 
  Country: None (occurrence: None)
  Receive Date: 20120322
  Receipt Date: 20120319
  Transmission Date: 20120608
  Serious: Yes (Other)
  Sender: FDA-Public Use
  Company Number: CA-PFIZER INC-2012016812

PATIENT
  Sex: Male

DRUGS (2)
  1. INSPRA [Suspect]
     Dosage: 12.5 MG, UNK
     Dates: end: 20111001
  2. INSPRA [Suspect]
     Indication: HYPERALDOSTERONISM
     Dosage: 25 MG, UNK
     Dates: start: 20110601

REACTIONS (3)
  - COGNITIVE DISORDER [None]
  - DRUG INTOLERANCE [None]
  - PROSTATIC SPECIFIC ANTIGEN INCREASED [None]
